FAERS Safety Report 9262855 (Version 1)
Quarter: 2013Q2

REPORT INFORMATION
  Report Type: Spontaneous
  Country: US (occurrence: None)
  Receive Date: 20130422
  Receipt Date: 20130422
  Transmission Date: 20140414
  Serious: No
  Sender: FDA-Public Use
  Company Number: 2013035500

PATIENT
  Sex: Female

DRUGS (1)
  1. HIZENTRA (IMMUNOGLOBULIN HUMAN NORMAL) [Suspect]
     Dosage: 1X/WEEK SUBCUTANEOUS
     Route: 058

REACTIONS (2)
  - Dyspnoea [None]
  - Left ventricular failure [None]
